FAERS Safety Report 8517045-2 (Version None)
Quarter: 2012Q3

REPORT INFORMATION
  Report Type: 
  Country: None (occurrence: None)
  Receive Date: 20120718
  Receipt Date: 20110926
  Transmission Date: 20120928
  Serious: Yes (Life-Threatening, Hospitalization)
  Sender: FDA-Public Use
  Company Number: BG-BAYER-2010-001356

PATIENT
  Age: 51 Year
  Sex: Male
  Weight: 95 kg

DRUGS (8)
  1. ASPIRIN [Interacting]
     Route: 048
     Dates: start: 20101115
  2. BISOPROLOL FUMARATE [Concomitant]
     Indication: ILL-DEFINED DISORDER
  3. ROSUVASTATIN [Concomitant]
     Indication: ILL-DEFINED DISORDER
  4. GLICLAZIDE [Concomitant]
     Indication: ILL-DEFINED DISORDER
  5. METFORMIN HCL [Concomitant]
     Indication: ILL-DEFINED DISORDER
  6. ASPIRIN [Suspect]
     Route: 048
     Dates: end: 20101111
  7. CLOPIDOGREL [Interacting]
  8. RIVAROXABAN [Interacting]
     Indication: ACUTE CORONARY SYNDROME
     Dosage: 5 MG, BID
     Route: 048
     Dates: start: 20101026, end: 20101107

REACTIONS (1)
  - HAEMATURIA [None]
